FAERS Safety Report 15565801 (Version 1)
Quarter: 2018Q4

REPORT INFORMATION
  Report Type: Spontaneous
  Country: US (occurrence: US)
  Receive Date: 20181030
  Receipt Date: 20181030
  Transmission Date: 20190205
  Serious: Yes (Death, Hospitalization, Other)
  Sender: FDA-Public Use
  Company Number: US-ASTELLAS-2018US045978

PATIENT
  Age: 73 Year
  Sex: Male

DRUGS (5)
  1. TARCEVA [Suspect]
     Active Substance: ERLOTINIB HYDROCHLORIDE
     Indication: NON-SMALL CELL LUNG CANCER
     Dosage: UNK UNK, UNKNOWN FREQ.
     Route: 065
     Dates: start: 20130906
  2. TARCEVA [Suspect]
     Active Substance: ERLOTINIB HYDROCHLORIDE
     Route: 065
     Dates: end: 20160906
  3. TARCEVA [Suspect]
     Active Substance: ERLOTINIB HYDROCHLORIDE
     Dosage: UNK UNK, UNKNOWN FREQ.
     Route: 065
     Dates: start: 20170110
  4. TARCEVA [Suspect]
     Active Substance: ERLOTINIB HYDROCHLORIDE
     Route: 065
     Dates: start: 20171015
  5. TARCEVA [Suspect]
     Active Substance: ERLOTINIB HYDROCHLORIDE
     Route: 065
     Dates: start: 20180118, end: 20180121

REACTIONS (22)
  - Cardiac failure congestive [Unknown]
  - Vision blurred [Unknown]
  - Blood urine present [Unknown]
  - Dysgeusia [Unknown]
  - Chest pain [Unknown]
  - Dyspnoea [Unknown]
  - Cardiac arrest [Fatal]
  - Respiratory failure [Unknown]
  - Petechiae [Unknown]
  - Cough [Unknown]
  - Fatigue [Unknown]
  - Disease progression [Unknown]
  - Retching [Unknown]
  - Nausea [Unknown]
  - Decreased appetite [Unknown]
  - Pleural effusion [Unknown]
  - Chronic obstructive pulmonary disease [Unknown]
  - Dizziness [Unknown]
  - Chills [Unknown]
  - Genital rash [Unknown]
  - Diarrhoea [Unknown]
  - Drug ineffective [Unknown]

NARRATIVE: CASE EVENT DATE: 2017
